FAERS Safety Report 5254610-2 (Version None)
Quarter: 2007Q1

REPORT INFORMATION
  Report Type: 
  Country: None (occurrence: None)
  Receive Date: 20070302
  Receipt Date: 20070220
  Transmission Date: 20070707
  Serious: Yes (Other)
  Sender: FDA-Public Use
  Company Number: JP-PFIZER INC-2007014294

PATIENT
  Age: 76 Year
  Sex: Female

DRUGS (3)
  1. UNASYN [Suspect]
     Indication: PERITONITIS
     Dosage: DAILY DOSE:3GRAM
     Route: 042
     Dates: start: 20070210, end: 20070212
  2. CILASTATIN SODIUM W/IMIPENEM [Concomitant]
     Route: 042
  3. ISEPACIN [Concomitant]
     Route: 042

REACTIONS (1)
  - MELAENA [None]
